FAERS Safety Report 24468042 (Version 1)
Quarter: 2024Q4

REPORT INFORMATION
  Report Type: Spontaneous
  Country: FI (occurrence: FI)
  Receive Date: 20241018
  Receipt Date: 20241018
  Transmission Date: 20250115
  Serious: Yes (Other)
  Sender: AMGEN
  Company Number: FI-ROCHE-10000101047

PATIENT
  Age: 82 Year
  Sex: Female

DRUGS (3)
  1. BEVACIZUMAB [Suspect]
     Active Substance: BEVACIZUMAB
     Indication: Eye disorder
     Dosage: 3X EVERY 4 WEEKS
     Route: 065
  2. BEVACIZUMAB [Suspect]
     Active Substance: BEVACIZUMAB
     Indication: Off label use
  3. VABYSMO [Suspect]
     Active Substance: FARICIMAB-SVOA
     Indication: Eye disorder
     Dosage: 3X EVERY 4 WEEKS
     Route: 065

REACTIONS (3)
  - Retinal haemorrhage [Unknown]
  - Drug ineffective [Unknown]
  - Off label use [Unknown]
